FAERS Safety Report 10195454 (Version 1)
Quarter: 2014Q2

REPORT INFORMATION
  Report Type: Spontaneous
  Country: CN (occurrence: CN)
  Receive Date: 20140526
  Receipt Date: 20140526
  Transmission Date: 20141212
  Serious: Yes (Other)
  Sender: FDA-Public Use
  Company Number: CN-009507513-1405CHN013132

PATIENT
  Age: 41 Year
  Sex: Male

DRUGS (1)
  1. IMIPENEM (+) CILASTATIN SODIUM [Suspect]
     Indication: PYREXIA
     Dosage: 0.5 G, Q8H, GTT
     Route: 042

REACTIONS (1)
  - Epilepsy [Recovered/Resolved]
